FAERS Safety Report 5230145-8 (Version None)
Quarter: 2007Q1

REPORT INFORMATION
  Report Type: 
  Country: None (occurrence: None)
  Receive Date: 20070206
  Receipt Date: 20060822
  Transmission Date: 20070707
  Serious: No
  Sender: FDA-Public Use
  Company Number: US-GLAXOSMITHKLINE-A0617678A

PATIENT
  Age: 67 Year
  Sex: Female

DRUGS (6)
  1. PAXIL CR [Suspect]
     Indication: MAJOR DEPRESSION
     Dosage: 12.5MG PER DAY
     Route: 048
  2. ZETIA [Concomitant]
  3. XANAX [Concomitant]
  4. SPIRIVA [Concomitant]
  5. ASMANEX TWISTHALER [Concomitant]
  6. PROTONIX [Concomitant]

REACTIONS (4)
  - DRUG INEFFECTIVE [None]
  - GAIT DISTURBANCE [None]
  - LETHARGY [None]
  - MALAISE [None]
